FAERS Safety Report 7061618-3 (Version None)
Quarter: 2010Q4

REPORT INFORMATION
  Report Type: 
  Country: None (occurrence: None)
  Receive Date: 20101026
  Receipt Date: 20101018
  Transmission Date: 20110411
  Serious: No
  Sender: FDA-Public Use
  Company Number: US-ABBOTT-10P-163-0673234-00

PATIENT
  Sex: Female
  Weight: 78.996 kg

DRUGS (5)
  1. LUPRON DEPOT [Suspect]
     Indication: UTERINE LEIOMYOMA
     Dates: start: 20100901
  2. CRESTOR [Concomitant]
     Indication: BLOOD CHOLESTEROL INCREASED
  3. TOPROL-XL [Concomitant]
     Indication: HYPERTENSION
     Dates: start: 20070101, end: 20101012
  4. TOPROL-XL [Concomitant]
     Dates: start: 20101013
  5. SPIRONOLACTONE [Concomitant]
     Indication: HYPERTENSION
     Dates: start: 20101013

REACTIONS (3)
  - BLOOD PRESSURE INCREASED [None]
  - FATIGUE [None]
  - HEADACHE [None]
